FAERS Safety Report 12079000 (Version 1)
Quarter: 2016Q1

REPORT INFORMATION
  Report Type: Spontaneous
  Country: US (occurrence: US)
  Receive Date: 20160216
  Receipt Date: 20160216
  Transmission Date: 20160526
  Serious: No
  Sender: FDA-Public Use
  Company Number: US-PFIZER INC-2016033448

PATIENT
  Age: 6 Year
  Sex: Male
  Weight: 20 kg

DRUGS (1)
  1. CHILDRENS ADVIL [Suspect]
     Active Substance: IBUPROFEN
     Indication: PYREXIA
     Dosage: UNK UNK, 3X/DAY
     Dates: start: 20160119

REACTIONS (7)
  - Lip swelling [Unknown]
  - Pruritus [Unknown]
  - Lip pruritus [Unknown]
  - Eye pruritus [Unknown]
  - Eye swelling [Unknown]
  - Drug hypersensitivity [Unknown]
  - Swelling face [Unknown]
